FAERS Safety Report 25353031 (Version 1)
Quarter: 2025Q2

REPORT INFORMATION
  Report Type: Report from Study
  Country: CO (occurrence: CO)
  Receive Date: 20250523
  Receipt Date: 20250523
  Transmission Date: 20250716
  Serious: Yes (Hospitalization, Other)
  Sender: IPSEN BIOPHARMACEUTICALS, INC.
  Company Number: CO-IPSEN Group, Research and Development-2023-20426

PATIENT
  Age: 31 Year
  Sex: Male
  Weight: 93 kg

DRUGS (4)
  1. LANREOTIDE ACETATE [Suspect]
     Active Substance: LANREOTIDE ACETATE
     Indication: Acromegaly
     Route: 058
     Dates: start: 20200406
  2. CABERGOLINE [Concomitant]
     Active Substance: CABERGOLINE
     Indication: Acromegaly
     Dosage: 1 TABLET EVERY WEDNESDAY
     Route: 048
     Dates: start: 2020
  3. CABERGOLINE [Concomitant]
     Active Substance: CABERGOLINE
     Dosage: 1 TABLET EVERY WEDNESDAY
     Route: 048
     Dates: start: 202207
  4. CABERGOLINE [Concomitant]
     Active Substance: CABERGOLINE
     Dosage: 1 TABLET EVERY WEDNESDAY
     Route: 048
     Dates: start: 2023

REACTIONS (16)
  - Syncope [Recovered/Resolved]
  - Abdominal pain [Unknown]
  - Gastrooesophageal reflux disease [Unknown]
  - Pain [Unknown]
  - Diarrhoea [Recovered/Resolved]
  - Pyrexia [Recovered/Resolved]
  - Drug ineffective [Unknown]
  - Unevaluable event [Unknown]
  - Product administered at inappropriate site [Unknown]
  - Influenza [Not Recovered/Not Resolved]
  - Vomiting [Recovered/Resolved]
  - Chills [Recovered/Resolved]
  - Intentional product misuse [Unknown]
  - Product dose omission issue [Unknown]
  - Therapy interrupted [Unknown]
  - Product supply issue [Unknown]

NARRATIVE: CASE EVENT DATE: 20200101
